FAERS Safety Report 5916063-8 (Version None)
Quarter: 2008Q4

REPORT INFORMATION
  Report Type: 
  Country: None (occurrence: None)
  Receive Date: 20081013
  Receipt Date: 20081008
  Transmission Date: 20090506
  Serious: Yes (Hospitalization)
  Sender: FDA-Public Use
  Company Number: FR-BRISTOL-MYERS SQUIBB COMPANY-14361554

PATIENT
  Age: 64 Year
  Sex: Male

DRUGS (4)
  1. REYATAZ [Suspect]
     Route: 048
     Dates: start: 20070110
  2. KIVEXA [Suspect]
     Route: 048
     Dates: start: 20060307
  3. NORVIR [Suspect]
     Dosage: CAPSULE
     Route: 048
     Dates: start: 20060307
  4. VIREAD [Concomitant]
     Dosage: DRUG STOPPED.
     Dates: start: 20060307

REACTIONS (1)
  - MYOCARDIAL INFARCTION [None]
